FAERS Safety Report 16388576 (Version 1)
Quarter: 2019Q3

REPORT INFORMATION
  Report Type: Spontaneous
  Country: US (occurrence: US)
  Receive Date: 20190601
  Receipt Date: 20190601
  Transmission Date: 20191004
  Serious: Yes (Other)
  Sender: FDA-Public Use
  Company Number: None

PATIENT
  Age: 28 Year
  Sex: Male
  Weight: 67.5 kg

DRUGS (10)
  1. BUSPAR [Concomitant]
     Active Substance: BUSPIRONE HYDROCHLORIDE
  2. MONTELUKAST [Concomitant]
     Active Substance: MONTELUKAST SODIUM
  3. DILTIAZAM 2% OINTMENT [Suspect]
     Active Substance: DILTIAZEM
     Indication: ANAL FISSURE
     Dosage: ?          QUANTITY:15 GRAMS;?
     Route: 061
     Dates: start: 20181116, end: 20190130
  4. FLOANSE [Concomitant]
  5. CLOBETASOL [Concomitant]
     Active Substance: CLOBETASOL
  6. COLACE [Concomitant]
     Active Substance: DOCUSATE SODIUM
  7. GENERIC MULTIVITAMIN GUMMIES [Concomitant]
  8. CITRUCELLE [Concomitant]
  9. AZELASTINE. [Concomitant]
     Active Substance: AZELASTINE HYDROCHLORIDE
  10. FEXOFENADINE [Concomitant]
     Active Substance: FEXOFENADINE HYDROCHLORIDE

REACTIONS (4)
  - Drug hypersensitivity [None]
  - Product use in unapproved indication [None]
  - Application site rash [None]
  - Anal pruritus [None]

NARRATIVE: CASE EVENT DATE: 20190128
